FAERS Safety Report 14307667 (Version 1)
Quarter: 2017Q4

REPORT INFORMATION
  Report Type: Spontaneous
  Country: NL (occurrence: NL)
  Receive Date: 20171220
  Receipt Date: 20171220
  Transmission Date: 20180321
  Serious: No
  Sender: FDA-Public Use
  Company Number: NL-LUPIN PHARMACEUTICALS INC.-2017-05518

PATIENT
  Age: 12 Year
  Sex: Female

DRUGS (6)
  1. VORICONAZOLE. [Interacting]
     Active Substance: VORICONAZOLE
     Indication: CEREBRAL ASPERGILLOSIS
     Dosage: 12 MG/KG, QD (DOSE REDUCED)
     Route: 048
  2. VORICONAZOLE. [Suspect]
     Active Substance: VORICONAZOLE
     Indication: BRONCHOPULMONARY ASPERGILLOSIS
     Dosage: 12 MG/KG, QD
     Route: 042
  3. FLUCLOXACILLIN [Interacting]
     Active Substance: FLUCLOXACILLIN
     Indication: STAPHYLOCOCCAL SEPSIS
     Dosage: 1200 MG, QD (226 MG/KG/DAY)
     Route: 042
  4. VORICONAZOLE. [Interacting]
     Active Substance: VORICONAZOLE
     Indication: CEREBRAL ASPERGILLOSIS
     Dosage: 18 MG/KG, QD
     Route: 042
  5. VORICONAZOLE. [Interacting]
     Active Substance: VORICONAZOLE
     Dosage: 24 MG/KG, QD
     Route: 042
  6. VORICONAZOLE. [Interacting]
     Active Substance: VORICONAZOLE
     Indication: BRONCHOPULMONARY ASPERGILLOSIS
     Dosage: 18 MG/KG, QD
     Route: 048

REACTIONS (2)
  - Therapeutic response decreased [Not Recovered/Not Resolved]
  - Drug interaction [Unknown]
